FAERS Safety Report 7955151-1 (Version None)
Quarter: 2011Q4

REPORT INFORMATION
  Report Type: 
  Country: None (occurrence: None)
  Receive Date: 20111202
  Receipt Date: 20091022
  Transmission Date: 20120403
  Serious: Yes (Death)
  Sender: FDA-Public Use
  Company Number: CA-JNJFOC-20090405477

PATIENT
  Age: 83 Year
  Sex: Female

DRUGS (21)
  1. TYLENOL W/ CODEINE [Suspect]
     Indication: PRODUCT USED FOR UNKNOWN INDICATION
  2. TYLENOL W/ CODEINE NO. 3 [Suspect]
     Indication: PRODUCT USED FOR UNKNOWN INDICATION
  3. LIPITOR [Suspect]
     Indication: PRODUCT USED FOR UNKNOWN INDICATION
  4. ALTACE [Suspect]
     Indication: PRODUCT USED FOR UNKNOWN INDICATION
  5. HYDROCHLOROTHIAZIDE [Suspect]
     Indication: PRODUCT USED FOR UNKNOWN INDICATION
  6. ASPIRIN [Suspect]
     Indication: PRODUCT USED FOR UNKNOWN INDICATION
  7. GLYCERIN [Suspect]
     Indication: PRODUCT USED FOR UNKNOWN INDICATION
  8. MOTRIN IB [Suspect]
  9. QUININE SULFATE [Suspect]
     Indication: PRODUCT USED FOR UNKNOWN INDICATION
  10. METOPROLOL TARTRATE [Suspect]
     Indication: PRODUCT USED FOR UNKNOWN INDICATION
  11. PLAVIX [Suspect]
     Indication: PRODUCT USED FOR UNKNOWN INDICATION
  12. ROBAXACET [Suspect]
     Indication: PRODUCT USED FOR UNKNOWN INDICATION
  13. MOTRIN IB [Suspect]
     Indication: PRODUCT USED FOR UNKNOWN INDICATION
  14. IBUPROFEN [Suspect]
     Indication: PRODUCT USED FOR UNKNOWN INDICATION
  15. LACTULOSE [Suspect]
     Indication: PRODUCT USED FOR UNKNOWN INDICATION
  16. TEMAZEPAM [Suspect]
     Indication: PRODUCT USED FOR UNKNOWN INDICATION
  17. ALLOPURINOL [Suspect]
     Indication: PRODUCT USED FOR UNKNOWN INDICATION
  18. SERTRALINE HYDROCHLORIDE [Suspect]
     Indication: PRODUCT USED FOR UNKNOWN INDICATION
  19. TERAZOSIN HCL [Suspect]
     Indication: PRODUCT USED FOR UNKNOWN INDICATION
  20. NIFEDIPINE [Suspect]
     Indication: PRODUCT USED FOR UNKNOWN INDICATION
  21. BETASERON [Suspect]
     Indication: PRODUCT USED FOR UNKNOWN INDICATION
     Dosage: THERAPY DURATION 3 YEARS
     Route: 058

REACTIONS (6)
  - JAUNDICE [None]
  - MALAISE [None]
  - PANCREATIC CARCINOMA [None]
  - MUSCULOSKELETAL STIFFNESS [None]
  - BACK PAIN [None]
  - ABDOMINAL PAIN [None]
